FAERS Safety Report 5242707-2 (Version None)
Quarter: 2007Q1

REPORT INFORMATION
  Report Type: 
  Country: None (occurrence: None)
  Receive Date: 20070221
  Receipt Date: 20070220
  Transmission Date: 20070707
  Serious: Yes (Other)
  Sender: FDA-Public Use
  Company Number: CA-GLAXOSMITHKLINE-A0638388A

PATIENT
  Age: 70 Year
  Sex: Female
  Weight: 63.6 kg

DRUGS (3)
  1. MALARONE [Suspect]
     Indication: DRUG USE FOR UNKNOWN INDICATION
     Route: 065
     Dates: start: 20061216
  2. HYDROCHLOROTHIAZIDE [Concomitant]
     Dosage: 25MG PER DAY
     Dates: start: 20060101
  3. PERINDOPRIL ERBUMINE [Concomitant]
     Dosage: 4MG PER DAY
     Dates: start: 20060112

REACTIONS (6)
  - DIARRHOEA [None]
  - DIZZINESS [None]
  - NAUSEA [None]
  - PALPITATIONS [None]
  - PARAESTHESIA [None]
  - SYNCOPE [None]
